FAERS Safety Report 16362918 (Version 10)
Quarter: 2025Q3

REPORT INFORMATION
  Report Type: Report from Study
  Country: JP (occurrence: JP)
  Receive Date: 20190528
  Receipt Date: 20250708
  Transmission Date: 20251020
  Serious: Yes (Death, Hospitalization)
  Sender: GILEAD
  Company Number: JP-GILEAD-2019-0409468

PATIENT
  Age: 52 Year
  Sex: Female
  Weight: 71 kg

DRUGS (32)
  1. SOFOSBUVIR\VELPATASVIR [Suspect]
     Active Substance: SOFOSBUVIR\VELPATASVIR
     Indication: Hepatitis C
     Dosage: 1 DOSAGE FORM, QD
     Route: 048
     Dates: start: 20190516, end: 20190521
  2. SOFOSBUVIR\VELPATASVIR [Suspect]
     Active Substance: SOFOSBUVIR\VELPATASVIR
     Indication: Hepatic cirrhosis
     Dosage: 1 DOSAGE FORM, QD
     Route: 048
     Dates: start: 20190523, end: 20190616
  3. SOFOSBUVIR\VELPATASVIR [Suspect]
     Active Substance: SOFOSBUVIR\VELPATASVIR
     Dosage: 1 DOSAGE FORM, QD
     Route: 048
     Dates: start: 20190618, end: 20190620
  4. TRICHLORMETHIAZIDE [Concomitant]
     Active Substance: TRICHLORMETHIAZIDE
     Indication: Ascites
     Route: 048
     Dates: end: 20190702
  5. SPIRONOLACTONE [Concomitant]
     Active Substance: SPIRONOLACTONE
     Indication: Ascites
     Route: 048
     Dates: end: 20190502
  6. SPIRONOLACTONE [Concomitant]
     Active Substance: SPIRONOLACTONE
     Indication: Hepatic cirrhosis
  7. LACTULOSE [Concomitant]
     Active Substance: LACTULOSE
     Indication: Hepatic encephalopathy
     Route: 048
     Dates: start: 20160122, end: 20190702
  8. LACTULOSE [Concomitant]
     Active Substance: LACTULOSE
     Indication: Hepatic cirrhosis
  9. INSULIN NOS [Concomitant]
     Active Substance: INSULIN NOS
     Indication: Diabetes mellitus
  10. CORTRIL [Concomitant]
     Active Substance: HYDROCORTISONE
     Indication: Adrenal insufficiency
     Route: 048
     Dates: end: 20190702
  11. ALBUMIN HUMAN [Concomitant]
     Active Substance: ALBUMIN HUMAN
     Indication: Hypoalbuminaemia
     Dates: start: 20190516, end: 20190517
  12. ALBUMIN HUMAN [Concomitant]
     Active Substance: ALBUMIN HUMAN
     Indication: Hepatic cirrhosis
     Dates: start: 20190527, end: 20190528
  13. ALBUMIN HUMAN [Concomitant]
     Active Substance: ALBUMIN HUMAN
     Dates: start: 20190502, end: 20190705
  14. ZOLPIDEM TARTRATE [Concomitant]
     Active Substance: ZOLPIDEM TARTRATE
     Indication: Insomnia
  15. FAMOTIDINE D EMEC [Concomitant]
     Indication: Prophylaxis against gastrointestinal ulcer
  16. LASIX [Concomitant]
     Active Substance: FUROSEMIDE
     Indication: Ascites
     Route: 048
     Dates: start: 20151111, end: 20190705
  17. LASIX [Concomitant]
     Active Substance: FUROSEMIDE
     Indication: Hepatic cirrhosis
  18. K SUPPLY [POTASSIUM CHLORIDE] [Concomitant]
     Indication: Hypokalaemia
  19. FEBUXOSTAT [Concomitant]
     Active Substance: FEBUXOSTAT
     Indication: Hyperuricaemia
     Route: 048
     Dates: end: 20190702
  20. BROTIZOLAM [Concomitant]
     Active Substance: BROTIZOLAM
     Indication: Insomnia
  21. MONTELUKAST [Concomitant]
     Active Substance: MONTELUKAST
     Indication: Rhinitis
  22. TRAMADOL [Concomitant]
     Active Substance: TRAMADOL
     Indication: Back pain
     Route: 048
     Dates: end: 20190702
  23. BIOFERMIN R [ENTEROCOCCUS FAECALIS] [Concomitant]
     Indication: Diarrhoea
  24. CALONAL [Concomitant]
     Active Substance: ACETAMINOPHEN
     Indication: Back pain
  25. CALCIUM CHLORIDE ANHYDROUS\POTASSIUM CHLORIDE\SODIUM CHLORIDE\SODIUM L [Concomitant]
     Active Substance: CALCIUM CHLORIDE ANHYDROUS\POTASSIUM CHLORIDE\SODIUM CHLORIDE\SODIUM LACTATE
     Indication: Hepatic encephalopathy
     Dates: start: 20190519, end: 20190602
  26. URSODIOL [Concomitant]
     Active Substance: URSODIOL
     Indication: Hepatitis C
     Route: 048
     Dates: end: 20190702
  27. SPIRONOLACTONE [Concomitant]
     Active Substance: SPIRONOLACTONE
     Indication: Hepatic cirrhosis
     Route: 048
     Dates: start: 20151111, end: 20190705
  28. SLOW K [Concomitant]
     Active Substance: POTASSIUM CHLORIDE
     Route: 048
     Dates: end: 20190702
  29. BROTIZOLAM [Concomitant]
     Active Substance: BROTIZOLAM
     Route: 048
     Dates: end: 20190702
  30. ZOLPIDEM TARTRATE [Concomitant]
     Active Substance: ZOLPIDEM TARTRATE
     Route: 048
     Dates: end: 20190702
  31. SINGULAIR [Concomitant]
     Active Substance: MONTELUKAST SODIUM
     Route: 048
     Dates: end: 20190702
  32. FAMOTIDINE [Concomitant]
     Active Substance: FAMOTIDINE
     Route: 048
     Dates: end: 20190702

REACTIONS (6)
  - Hepatic encephalopathy [Recovered/Resolved]
  - Cardiac failure [Recovered/Resolved]
  - Hepatic encephalopathy [Recovered/Resolved]
  - Hepatic encephalopathy [Fatal]
  - Hepatic failure [Fatal]
  - Renal impairment [Not Recovered/Not Resolved]

NARRATIVE: CASE EVENT DATE: 20190522
